FAERS Safety Report 10215821 (Version 1)
Quarter: 2014Q2

REPORT INFORMATION
  Report Type: Spontaneous
  Country: US (occurrence: None)
  Receive Date: 20140603
  Receipt Date: 20140603
  Transmission Date: 20141212
  Serious: Yes (Other)
  Sender: FDA-Public Use
  Company Number: None

PATIENT
  Age: 47 Year
  Sex: Female
  Weight: 68.04 kg

DRUGS (1)
  1. ADDERALL [Suspect]
     Indication: ATTENTION DEFICIT/HYPERACTIVITY DISORDER
     Route: 048
     Dates: start: 20140530, end: 20140531

REACTIONS (7)
  - Rash [None]
  - Headache [None]
  - Insomnia [None]
  - Fatigue [None]
  - Disturbance in attention [None]
  - Hypersensitivity [None]
  - Product substitution issue [None]
